FAERS Safety Report 6616437-6 (Version None)
Quarter: 2010Q1

REPORT INFORMATION
  Report Type: 
  Country: None (occurrence: None)
  Receive Date: 20100305
  Receipt Date: 20100224
  Transmission Date: 20100710
  Serious: Yes (Life-Threatening, Hospitalization)
  Sender: FDA-Public Use
  Company Number: PHHY2010JP06555

PATIENT
  Sex: Male
  Weight: 60 kg

DRUGS (6)
  1. LAMISIL [Suspect]
     Dosage: 125 MG/DAY
     Route: 048
     Dates: start: 20100120, end: 20100126
  2. LAMISIL [Suspect]
     Dosage: 125 MG DAILY
     Route: 048
     Dates: start: 20040127, end: 20040501
  3. KINEDAK [Concomitant]
     Route: 048
  4. ZANTAC [Concomitant]
     Route: 048
  5. ALOSENN [Concomitant]
     Route: 048
  6. SHAKUYAKUKANZOUTOU [Concomitant]
     Route: 048

REACTIONS (22)
  - ACUTE MYOCARDIAL INFARCTION [None]
  - BLOOD CREATININE INCREASED [None]
  - BRADYCARDIA [None]
  - CARDIAC PACEMAKER INSERTION [None]
  - CARDIOGENIC SHOCK [None]
  - CHEST DISCOMFORT [None]
  - CIRCULATORY COLLAPSE [None]
  - CLOSTRIDIAL INFECTION [None]
  - CONTINUOUS HAEMODIAFILTRATION [None]
  - CYTOMEGALOVIRUS TEST POSITIVE [None]
  - DECREASED APPETITE [None]
  - ELECTROCARDIOGRAM ST SEGMENT ELEVATION [None]
  - HEPATIC FAILURE [None]
  - HYPOTENSION [None]
  - INTRA-AORTIC BALLOON PLACEMENT [None]
  - MECHANICAL VENTILATION [None]
  - PERCUTANEOUS CORONARY INTERVENTION [None]
  - PLATELET COUNT DECREASED [None]
  - PNEUMONIA KLEBSIELLA [None]
  - RESPIRATORY DEPRESSION [None]
  - STAPHYLOCOCCAL INFECTION [None]
  - TRACHEOSTOMY [None]
